FAERS Safety Report 6275093-X (Version None)
Quarter: 2009Q3

REPORT INFORMATION
  Report Type: 
  Country: None (occurrence: None)
  Receive Date: 20090721
  Receipt Date: 20090707
  Transmission Date: 20100115
  Serious: Yes (Hospitalization)
  Sender: FDA-Public Use
  Company Number: PHHY2009JP15630

PATIENT
  Sex: Male
  Weight: 53 kg

DRUGS (12)
  1. ICL670A ICL+DISTAB [Suspect]
     Indication: IRON OVERLOAD
     Dosage: 1000 MG/DAY
     Route: 048
     Dates: start: 20090111, end: 20090209
  2. ICL670A ICL+DISTAB [Suspect]
     Dosage: 1000 MG/DAY
     Route: 048
     Dates: start: 20090224, end: 20090303
  3. ICL670A ICL+DISTAB [Suspect]
     Dosage: 500 MG/DAY
     Route: 048
     Dates: start: 20090310, end: 20090310
  4. ICL670A ICL+DISTAB [Suspect]
     Dosage: 250 MG/DAY
     Route: 048
     Dates: start: 20090408, end: 20090408
  5. ROCEPHIN [Suspect]
     Indication: UPPER RESPIRATORY TRACT INFECTION
     Dosage: 1G/DAY
     Route: 040
     Dates: start: 20090204, end: 20090206
  6. PRIMOBOLAN [Concomitant]
     Dosage: 20 MG
     Route: 048
     Dates: start: 20090111
  7. THYRADIN [Concomitant]
     Dosage: 150 UG
     Route: 048
  8. CRAVIT [Concomitant]
     Dosage: 400 MG
     Route: 048
     Dates: start: 20090111, end: 20090113
  9. DIFLUCAN [Concomitant]
     Dosage: 200 MG
     Route: 048
     Dates: start: 20090114
  10. GRAN [Concomitant]
     Dosage: 150 UG
     Dates: start: 20090204, end: 20090215
  11. MAXIPIME [Concomitant]
     Dosage: 2 G
     Dates: start: 20090206, end: 20090210
  12. FLOMOX [Concomitant]
     Dosage: 350 MG
     Route: 048
     Dates: start: 20090210, end: 20090227

REACTIONS (3)
  - LIVER DISORDER [None]
  - PYREXIA [None]
  - UPPER RESPIRATORY TRACT INFLAMMATION [None]
